FAERS Safety Report 7744656-4 (Version None)
Quarter: 2011Q3

REPORT INFORMATION
  Report Type: 
  Country: None (occurrence: None)
  Receive Date: 20110912
  Receipt Date: 20110829
  Transmission Date: 20111222
  Serious: Yes (Disabling, Other)
  Sender: FDA-Public Use
  Company Number: PHHY2011BR77190

PATIENT
  Sex: Male

DRUGS (3)
  1. EXFORGE [Suspect]
     Indication: HYPERTENSION
     Dosage: 1 DF (160/10MG) HALF ON THE MORNING AND HALF AT NIGHT
  2. EXFORGE [Suspect]
     Dosage: 2 DF (80/5MG) DAILY
  3. EXFORGE [Suspect]
     Indication: HYPERTENSION
     Dosage: 1 DF (80/5MG) DAILY

REACTIONS (3)
  - BLOOD PRESSURE INADEQUATELY CONTROLLED [None]
  - ISCHAEMIC STROKE [None]
  - HEMIPLEGIA [None]
